FAERS Safety Report 23843631 (Version 1)
Quarter: 2024Q2

REPORT INFORMATION
  Report Type: Report from Study
  Country: CA (occurrence: CA)
  Receive Date: 20240510
  Receipt Date: 20240510
  Transmission Date: 20240715
  Serious: Yes (Hospitalization, Other)
  Sender: FDA-Public Use
  Company Number: CA-AKCEA THERAPEUTICS, INC.-2024IS004332

PATIENT

DRUGS (7)
  1. TEGSEDI [Suspect]
     Active Substance: INOTERSEN SODIUM
     Indication: Hereditary neuropathic amyloidosis
     Dosage: 284 MILLIGRAM, QW
     Route: 058
     Dates: start: 20200924, end: 20211202
  2. TEGSEDI [Suspect]
     Active Substance: INOTERSEN SODIUM
     Indication: Polyneuropathy
  3. PANTOPRAZOLE [Concomitant]
     Active Substance: PANTOPRAZOLE
     Indication: Product used for unknown indication
     Dosage: 40 MILLIGRAM, QD
     Route: 048
     Dates: start: 20200814
  4. SYNTHROID [Concomitant]
     Active Substance: LEVOTHYROXINE SODIUM
     Indication: Product used for unknown indication
     Dosage: 0.125 MILLIGRAM
     Route: 065
  5. LYRICA [Concomitant]
     Active Substance: PREGABALIN
     Indication: Product used for unknown indication
     Dosage: UNK
     Route: 065
  6. TYLENOL [Concomitant]
     Active Substance: ACETAMINOPHEN
     Dosage: 1000 MILLIGRAM, QD PRN
     Route: 048
  7. PREGABALIN [Concomitant]
     Active Substance: PREGABALIN
     Indication: Product used for unknown indication
     Dosage: UNK
     Route: 065

REACTIONS (47)
  - Autoimmune haemolytic anaemia [Recovered/Resolved]
  - Aspartate aminotransferase increased [Unknown]
  - Cholelithiasis [Recovered/Resolved]
  - Gastrointestinal pain [Unknown]
  - Insomnia [Not Recovered/Not Resolved]
  - Food refusal [Not Recovered/Not Resolved]
  - Dyspepsia [Not Recovered/Not Resolved]
  - Cough [Not Recovered/Not Resolved]
  - Choking [Not Recovered/Not Resolved]
  - Hypogeusia [Not Recovered/Not Resolved]
  - Illness [Not Recovered/Not Resolved]
  - Haemolysis [Recovered/Resolved]
  - Haemoglobin decreased [Recovering/Resolving]
  - Emotional disorder [Not Recovered/Not Resolved]
  - Psychosocial support [Not Recovered/Not Resolved]
  - Ocular icterus [Recovered/Resolved]
  - Pallor [Recovered/Resolved]
  - Dry skin [Recovering/Resolving]
  - Blood bilirubin increased [Recovered/Resolved]
  - Gallbladder disorder [Unknown]
  - Jaundice [Recovered/Resolved]
  - Depressed mood [Unknown]
  - Depression [Unknown]
  - Polyp [Unknown]
  - Fat tissue increased [Unknown]
  - Vitamin A decreased [Unknown]
  - Red blood cell elliptocytes present [Recovered/Resolved]
  - Productive cough [Recovering/Resolving]
  - Red blood cell morphology abnormal [Recovered/Resolved]
  - Fear of death [Unknown]
  - Blood pressure decreased [Recovered/Resolved]
  - Dyspnoea [Recovering/Resolving]
  - Chest pain [Unknown]
  - Abdominal discomfort [Unknown]
  - Gastrointestinal disorder [Recovering/Resolving]
  - Asthenia [Recovering/Resolving]
  - White blood cell count decreased [Not Recovered/Not Resolved]
  - Alopecia [Not Recovered/Not Resolved]
  - Neutrophil count decreased [Not Recovered/Not Resolved]
  - Somnolence [Recovering/Resolving]
  - Anxiety [Not Recovered/Not Resolved]
  - Chest discomfort [Recovering/Resolving]
  - Panic reaction [Not Recovered/Not Resolved]
  - Hypophagia [Not Recovered/Not Resolved]
  - Nausea [Unknown]
  - Decreased appetite [Not Recovered/Not Resolved]
  - Hepatic enzyme increased [Not Recovered/Not Resolved]

NARRATIVE: CASE EVENT DATE: 20200101
